FAERS Safety Report 5632675-3 (Version None)
Quarter: 2008Q1

REPORT INFORMATION
  Report Type: 
  Country: None (occurrence: None)
  Receive Date: 20080220
  Receipt Date: 20080208
  Transmission Date: 20080703
  Serious: Yes (Other)
  Sender: FDA-Public Use
  Company Number: US-PFIZER INC-2008013692

PATIENT

DRUGS (1)
  1. LYRICA [Suspect]

REACTIONS (1)
  - OPTIC NEUROPATHY [None]
